FAERS Safety Report 15621199 (Version 2)
Quarter: 2019Q4

REPORT INFORMATION
  Report Type: Report from Study
  Country: CA (occurrence: CA)
  Receive Date: 20181115
  Receipt Date: 20191026
  Transmission Date: 20200122
  Serious: Yes (Death, Hospitalization, Other)
  Sender: FDA-Public Use
  Company Number: PHHY2018CA013074

PATIENT
  Age: 76 Year
  Sex: Male
  Weight: 59.5 kg

DRUGS (4)
  1. ENTRESTO [Suspect]
     Active Substance: SACUBITRIL\VALSARTAN
     Dosage: 2 DF (SACUBITRIL 24 MG/ VALSARTAN 26 MG)
     Route: 048
     Dates: start: 20170718
  2. ENTRESTO [Suspect]
     Active Substance: SACUBITRIL\VALSARTAN
     Indication: CARDIAC FAILURE
     Dosage: 50 MG (24/26 MG), BID
     Route: 065
     Dates: start: 20170620
  3. ENTRESTO [Suspect]
     Active Substance: SACUBITRIL\VALSARTAN
     Dosage: 2 DF (SACUBITRIL 97 MG/ VALSARTAN 103 MG)
     Route: 048
     Dates: start: 20170622, end: 20170717
  4. SPIRONOLACTONE. [Concomitant]
     Active Substance: SPIRONOLACTONE
     Indication: PRODUCT USED FOR UNKNOWN INDICATION
     Dosage: UNK
     Route: 065

REACTIONS (6)
  - Cardiac failure congestive [Fatal]
  - Syncope [Recovered/Resolved]
  - Hypotension [Fatal]
  - Renal impairment [Fatal]
  - Hyperkalaemia [Unknown]
  - Tachycardia [Fatal]

NARRATIVE: CASE EVENT DATE: 20180109
